FAERS Safety Report 15706636 (Version 1)
Quarter: 2018Q4

REPORT INFORMATION
  Report Type: Report from Study
  Country: CA (occurrence: CA)
  Receive Date: 20181210
  Receipt Date: 20181210
  Transmission Date: 20190205
  Serious: Yes (Other)
  Sender: FDA-Public Use
  Company Number: CA-HLSUS-2018-CA-001812

PATIENT
  Sex: Female

DRUGS (18)
  1. METROGEL [Concomitant]
     Active Substance: METRONIDAZOLE
     Dosage: BID
     Route: 061
  2. AMOXIL [Concomitant]
     Active Substance: AMOXICILLIN
     Dosage: 4 HOURS PRIOR TO DENTAL PROCEDURE
  3. FLUOCINOLONE [Concomitant]
     Active Substance: FLUOCINOLONE
     Dosage: 0.01 %
  4. CANESTEN [Concomitant]
     Active Substance: CLOTRIMAZOLE
     Dosage: TID PRN
  5. BETAMETHASONE. [Concomitant]
     Active Substance: BETAMETHASONE
     Dosage: BID PRN
     Route: 061
  6. ZANTAC [Concomitant]
     Active Substance: RANITIDINE HYDROCHLORIDE
     Dosage: 150 MG BID EMPTY STOMACH
     Route: 048
  7. LACTULOSE. [Concomitant]
     Active Substance: LACTULOSE
     Dosage: 15-30 ML  DAILY PRN
     Route: 048
  8. IBUPROFEN. [Concomitant]
     Active Substance: IBUPROFEN
     Dosage: 40O MG TID PRN
     Route: 048
  9. PHENOBARBITAL. [Concomitant]
     Active Substance: PHENOBARBITAL
     Dosage: 45 MG TID
     Route: 048
  10. PAXIL [Concomitant]
     Active Substance: PAROXETINE HYDROCHLORIDE
     Dosage: 40 MG DAILY X 3 MONTHS
  11. NIZORAL [Concomitant]
     Active Substance: KETOCONAZOLE
  12. MAGNESIUM GLUCONATE [Concomitant]
     Active Substance: MAGNESIUM GLUCONATE
     Dosage: 320 MG OD
     Route: 048
  13. LACTOBACILLUS ACIDOPHILUS [Concomitant]
     Active Substance: LACTOBACILLUS ACIDOPHILUS
  14. VITAMIN D [Concomitant]
     Active Substance: CHOLECALCIFEROL
     Dosage: 2000 IU OD X 3 MONTHS
     Route: 048
  15. CALCIUM CARBONATE. [Concomitant]
     Active Substance: CALCIUM CARBONATE
     Dosage: 1500 MG DAILY X 3 MONTHS
  16. HYDROCORTISONE. [Concomitant]
     Active Substance: HYDROCORTISONE
     Dosage: 1% BID PRN
  17. CLOZARIL [Suspect]
     Active Substance: CLOZAPINE
     Dosage: 1% BID PRN
     Route: 048
     Dates: start: 20180926
  18. DOCUSATE SODIUM. [Concomitant]
     Active Substance: DOCUSATE SODIUM
     Dosage: 100 MG BID
     Route: 048

REACTIONS (3)
  - Urinary incontinence [Unknown]
  - Hepatic function abnormal [Unknown]
  - Thrombocytopenia [Unknown]
